FAERS Safety Report 21695356 (Version 1)
Quarter: 2022Q4

REPORT INFORMATION
  Report Type: Spontaneous
  Country: NL (occurrence: NL)
  Receive Date: 20221207
  Receipt Date: 20221207
  Transmission Date: 20230113
  Serious: Yes (Other)
  Sender: FDA-Public Use
  Company Number: None

PATIENT
  Sex: Male
  Weight: 51.5 kg

DRUGS (2)
  1. METHYLPHENIDATE [Suspect]
     Active Substance: METHYLPHENIDATE
     Indication: Attention deficit hyperactivity disorder
     Dosage: PRESCRIBED 3X5 MG AS STARTING MEDICATION
     Route: 065
     Dates: start: 20221018, end: 20221019
  2. FLUOXETINE [Suspect]
     Active Substance: FLUOXETINE HYDROCHLORIDE
     Indication: Depression
     Dosage: 1XPERDAY 1 PIECE
     Route: 065
     Dates: start: 20220505

REACTIONS (1)
  - Dystonia [Recovered/Resolved]
